FAERS Safety Report 19518818 (Version 1)
Quarter: 2021Q3

REPORT INFORMATION
  Report Type: Spontaneous
  Country: US (occurrence: US)
  Receive Date: 20210710
  Receipt Date: 20210710
  Transmission Date: 20211014
  Serious: Yes (Other)
  Sender: FDA-Public Use
  Company Number: None

PATIENT
  Age: 68 Year
  Sex: Female
  Weight: 110.25 kg

DRUGS (24)
  1. XOLAIR [Concomitant]
     Active Substance: OMALIZUMAB
  2. ONDANSETRON [Concomitant]
     Active Substance: ONDANSETRON
  3. BUPRENORPHINE TRANSDERMAL SYSTEM [Suspect]
     Active Substance: BUPRENORPHINE
     Indication: PAIN MANAGEMENT
     Dosage: ?OTHER STRENGTH:PATCH;QUANTITY:1 PATCH(ES);OTHER FREQUENCY:ONE PATCH WEEKLY;?
     Route: 062
     Dates: start: 20210630, end: 20210703
  4. FARXIGA [Concomitant]
     Active Substance: DAPAGLIFLOZIN PROPANEDIOL
  5. CHLORZOXAZONE. [Concomitant]
     Active Substance: CHLORZOXAZONE
  6. OXYCODONE/APP [Concomitant]
  7. HYDROXYZINE [Concomitant]
     Active Substance: HYDROXYZINE HYDROCHLORIDE
  8. LISINOPROL [Concomitant]
     Active Substance: LISINOPRIL
  9. LEVOTHYROXINE. [Concomitant]
     Active Substance: LEVOTHYROXINE
  10. VITAMINE D2 [Concomitant]
  11. SPRINT PCS [Concomitant]
  12. NAPROXEN SODIUM. [Concomitant]
     Active Substance: NAPROXEN SODIUM
  13. ROPINIROLE. [Concomitant]
     Active Substance: ROPINIROLE
  14. DIAZEPAM. [Concomitant]
     Active Substance: DIAZEPAM
  15. HYOSCYAMINE. [Concomitant]
     Active Substance: HYOSCYAMINE
  16. ACTEMRA [Concomitant]
     Active Substance: TOCILIZUMAB
  17. BASAGLAR [Concomitant]
     Active Substance: INSULIN GLARGINE
  18. NOVOLOG [Concomitant]
     Active Substance: INSULIN ASPART
  19. ZETIA [Concomitant]
     Active Substance: EZETIMIBE
  20. FLUCONAZOLE. [Concomitant]
     Active Substance: FLUCONAZOLE
  21. PREDNISONE. [Concomitant]
     Active Substance: PREDNISONE
  22. NEXIUM [Concomitant]
     Active Substance: ESOMEPRAZOLE MAGNESIUM
  23. VICTOZA [Concomitant]
     Active Substance: LIRAGLUTIDE
  24. TIZANIDINE. [Concomitant]
     Active Substance: TIZANIDINE

REACTIONS (10)
  - Application site pruritus [None]
  - Application site erythema [None]
  - Urine abnormality [None]
  - Urinary tract infection [None]
  - Chromaturia [None]
  - Dysuria [None]
  - Application site discomfort [None]
  - Balance disorder [None]
  - Application site burn [None]
  - Dizziness [None]

NARRATIVE: CASE EVENT DATE: 20210710
